FAERS Safety Report 12341289 (Version 3)
Quarter: 2016Q3

REPORT INFORMATION
  Report Type: Spontaneous
  Country: JP (occurrence: JP)
  Receive Date: 20160506
  Receipt Date: 20160803
  Transmission Date: 20161109
  Serious: Yes (Hospitalization, Other)
  Sender: FDA-Public Use
  Company Number: JP-009507513-1604JPN006174

PATIENT
  Age: 1 Year
  Sex: Female
  Weight: 6.28 kg

DRUGS (9)
  1. AMBROXOL HYDROCHLORIDE [Concomitant]
     Active Substance: AMBROXOL HYDROCHLORIDE
     Dosage: 0.333 ML, TID, TOTAL DAILY DOSE: 0.999 ML
     Route: 048
     Dates: start: 20150528, end: 20160401
  2. LAC-B [Concomitant]
     Active Substance: BIFIDOBACTERIUM SPP.
     Dosage: 0.167 G, TID
     Route: 048
     Dates: start: 20130807, end: 20160401
  3. HERBAL NOS [Concomitant]
     Active Substance: HERBALS
     Indication: GASTROOESOPHAGEAL REFLUX DISEASE
     Dosage: 0.333 G, TID
     Route: 048
     Dates: start: 20150616, end: 20160401
  4. DIAZOXIDE CAPSULES 25 MG ^MSD^ [Suspect]
     Active Substance: DIAZOXIDE
     Indication: HYPOGLYCAEMIA
     Dosage: 10 MG, TID
     Route: 048
     Dates: start: 20150702, end: 20160331
  5. CARBOCYSTEINE [Concomitant]
     Active Substance: CARBOCYSTEINE
     Dosage: 0.667 ML, TID, TOTAL DAILY DOSE: 2.0 ML
     Route: 048
     Dates: start: 20150528, end: 20160401
  6. GASMOTIN [Concomitant]
     Active Substance: MOSAPRIDE CITRATE
     Indication: GASTROOESOPHAGEAL REFLUX DISEASE
     Dosage: 0.333 MG, TID, TOTAL DAILY DOSE: 0.999 MG
     Route: 048
     Dates: start: 20150528, end: 20160401
  7. DIAZOXIDE CAPSULES 25 MG ^MSD^ [Suspect]
     Active Substance: DIAZOXIDE
     Dosage: DAILY DOSAGE UNKNOWN
     Route: 048
     Dates: start: 20160502
  8. FUROSEMIDE. [Concomitant]
     Active Substance: FUROSEMIDE
     Indication: CARDIAC FAILURE
     Dosage: FORMULATION: FINE GRANULES (FGR), 2 MG, TID
     Route: 048
     Dates: start: 20150416, end: 20160401
  9. ALDACTONE A [Concomitant]
     Active Substance: SPIRONOLACTONE
     Indication: CARDIAC FAILURE
     Dosage: FORMULATION: FINE GRANULES (FGR), 2 MG, TID
     Dates: start: 20150416, end: 20160401

REACTIONS (3)
  - Agranulocytosis [Recovering/Resolving]
  - Pyrexia [Unknown]
  - Thrombocytopenia [Recovering/Resolving]

NARRATIVE: CASE EVENT DATE: 20160401
